FAERS Safety Report 17850944 (Version 22)
Quarter: 2022Q2

REPORT INFORMATION
  Report Type: Report from Study
  Country: CN (occurrence: None)
  Receive Date: 20200602
  Receipt Date: 20220617
  Transmission Date: 20220721
  Serious: Yes (Hospitalization, Other)
  Sender: FDA-Public Use
  Company Number: CN-EISAI MEDICAL RESEARCH-EC-2020-075207

PATIENT
  Age: 69 Year
  Sex: Male
  Weight: 66 kg

DRUGS (8)
  1. LENVATINIB [Suspect]
     Active Substance: LENVATINIB
     Indication: Hepatocellular carcinoma
     Dosage: (BODY WEIGHT (BW) GREATER OR EQUAL TO 60 KG)
     Route: 048
     Dates: start: 20191226, end: 20200601
  2. LENVATINIB [Suspect]
     Active Substance: LENVATINIB
     Dosage: (BODY WEIGHT (BW) GREATER OR EQUAL TO 60 KG)
     Route: 048
     Dates: start: 20200619
  3. PEMBROLIZUMAB [Suspect]
     Active Substance: PEMBROLIZUMAB
     Indication: Hepatocellular carcinoma
     Route: 041
     Dates: start: 20191226, end: 20200415
  4. PEMBROLIZUMAB [Suspect]
     Active Substance: PEMBROLIZUMAB
     Route: 041
     Dates: start: 20200508, end: 20200508
  5. PEMBROLIZUMAB [Suspect]
     Active Substance: PEMBROLIZUMAB
     Route: 041
     Dates: start: 20200619, end: 20210907
  6. ENTECAVIR [Concomitant]
     Active Substance: ENTECAVIR
     Dates: start: 201607
  7. IBUPROFEN [Concomitant]
     Active Substance: IBUPROFEN
     Dates: start: 20191202, end: 20200515
  8. LEVOTHYROXINE SODIUM [Concomitant]
     Active Substance: LEVOTHYROXINE SODIUM
     Dates: start: 20200210

REACTIONS (2)
  - Hepatic pain [Recovered/Resolved]
  - Respiratory failure [Recovered/Resolved]

NARRATIVE: CASE EVENT DATE: 20200512
